FAERS Safety Report 9249183 (Version 2)
Quarter: 2013Q2

REPORT INFORMATION
  Report Type: Spontaneous
  Country: US (occurrence: US)
  Receive Date: 20130423
  Receipt Date: 20130503
  Transmission Date: 20140414
  Serious: No
  Sender: FDA-Public Use
  Company Number: US-BAYER-2013-050019

PATIENT
  Age: 82 Year
  Sex: Female
  Weight: 81.63 kg

DRUGS (2)
  1. ALEVE TABLET [Suspect]
     Indication: SCIATICA
     Dosage: 1 DF, QD
     Route: 048
     Dates: start: 20130401, end: 20130415
  2. MULTIVITAMIN [Concomitant]

REACTIONS (8)
  - Rash [Not Recovered/Not Resolved]
  - Local swelling [Not Recovered/Not Resolved]
  - Incorrect drug administration duration [None]
  - Rash [Not Recovered/Not Resolved]
  - Rash pruritic [Not Recovered/Not Resolved]
  - Joint swelling [Not Recovered/Not Resolved]
  - Joint swelling [Not Recovered/Not Resolved]
  - Erythema [Recovered/Resolved]
